FAERS Safety Report 13564860 (Version 1)
Quarter: 2017Q2

REPORT INFORMATION
  Report Type: Spontaneous
  Country: PT (occurrence: PT)
  Receive Date: 20170519
  Receipt Date: 20170519
  Transmission Date: 20170830
  Serious: Yes (Life-Threatening)
  Sender: FDA-Public Use
  Company Number: PT-GUERBET-PT-20170011

PATIENT
  Age: 73 Year
  Sex: Male

DRUGS (1)
  1. OPTIRAY 320 [Suspect]
     Active Substance: IOVERSOL
     Indication: COMPUTERISED TOMOGRAM
     Route: 042
     Dates: start: 20170427, end: 20170427

REACTIONS (6)
  - Laryngeal oedema [Recovered/Resolved]
  - Loss of consciousness [Recovered/Resolved]
  - Radial pulse abnormal [Recovered/Resolved]
  - Micturition urgency [Recovered/Resolved]
  - Urinary incontinence [Recovered/Resolved]
  - Psychomotor hyperactivity [Recovered/Resolved]

NARRATIVE: CASE EVENT DATE: 20170427
